FAERS Safety Report 20210947 (Version 1)
Quarter: 2021Q4

REPORT INFORMATION
  Report Type: Spontaneous
  Country: US (occurrence: None)
  Receive Date: 20211220
  Receipt Date: 20211220
  Transmission Date: 20220303
  Serious: Yes (Hospitalization)
  Sender: FDA-Public Use
  Company Number: None

PATIENT
  Age: 54 Year
  Sex: Female
  Weight: 97.2 kg

DRUGS (13)
  1. IMBRUVICA [Suspect]
     Active Substance: IBRUTINIB
     Indication: Glioblastoma
     Dosage: FREQUENCY : DAILY;?
     Route: 048
     Dates: start: 20210831
  2. TEMOZOLOMIDE [Suspect]
     Active Substance: TEMOZOLOMIDE
     Indication: Glioblastoma
     Dosage: FREQUENCY : DAILY;?
     Route: 048
     Dates: start: 20210831
  3. FLUCONAZOLE [Concomitant]
     Active Substance: FLUCONAZOLE
  4. DEXAMETHASONE [Concomitant]
     Active Substance: DEXAMETHASONE
  5. ZOFRAN [Concomitant]
     Active Substance: ONDANSETRON HYDROCHLORIDE
  6. METOPROLOL SUCCINATE [Concomitant]
     Active Substance: METOPROLOL SUCCINATE
  7. CLONAZEPAM [Concomitant]
     Active Substance: CLONAZEPAM
  8. LEVETIRACETAM [Concomitant]
     Active Substance: LEVETIRACETAM
  9. PANTOPRAZOLE [Concomitant]
     Active Substance: PANTOPRAZOLE
  10. GABAPENTIN [Concomitant]
     Active Substance: GABAPENTIN
  11. MIRALAX [Concomitant]
     Active Substance: POLYETHYLENE GLYCOL 3350
  12. OXYCODONE [Concomitant]
     Active Substance: OXYCODONE
  13. COLACE [Concomitant]
     Active Substance: DOCUSATE SODIUM

REACTIONS (7)
  - Headache [None]
  - Parosmia [None]
  - Fall [None]
  - Burning sensation [None]
  - Muscular weakness [None]
  - Asthenia [None]
  - Seizure [None]

NARRATIVE: CASE EVENT DATE: 20211209
